FAERS Safety Report 10347187 (Version 1)
Quarter: 2020Q3

REPORT INFORMATION
  Report Type: Spontaneous
  Country: GB (occurrence: GB)
  Receive Date: 20140729
  Receipt Date: 20140729
  Transmission Date: 20201105
  Serious: Yes (Other)
  Sender: FDA-Public Use
  Company Number: GB-ELI_LILLY_AND_COMPANY-GB201407009813

PATIENT

DRUGS (3)
  1. SELUMETINIB. [Suspect]
     Active Substance: SELUMETINIB
     Indication: NEOPLASM MALIGNANT
     Dosage: 75 MG, QD
     Route: 065
  2. GEMCITABINE HYDROCHLORIDE. [Suspect]
     Active Substance: GEMCITABINE HYDROCHLORIDE
     Indication: NEOPLASM MALIGNANT
     Dosage: 1000 MG/M2, CYCLICAL
     Route: 042
  3. CISPLATIN. [Suspect]
     Active Substance: CISPLATIN
     Indication: NEOPLASM MALIGNANT
     Dosage: 25 MG/M2, CYCLICAL
     Route: 042

REACTIONS (1)
  - Myocardial ischaemia [Unknown]
